FAERS Safety Report 22056631 (Version 1)
Quarter: 2023Q1

REPORT INFORMATION
  Report Type: Spontaneous
  Country: US (occurrence: US)
  Receive Date: 20230302
  Receipt Date: 20230302
  Transmission Date: 20230418
  Serious: Yes (Other)
  Sender: FDA-Public Use
  Company Number: US-NOVOPROD-1027967

PATIENT
  Age: 60 Year
  Sex: Female

DRUGS (1)
  1. TRESIBA [Suspect]
     Active Substance: INSULIN DEGLUDEC
     Indication: Type 2 diabetes mellitus
     Dosage: 126 IU, BID (26U IN AM, 100U IN PM)
     Route: 058
     Dates: start: 2020

REACTIONS (1)
  - Urinary incontinence [Unknown]

NARRATIVE: CASE EVENT DATE: 20210101
